FAERS Safety Report 7266199-7 (Version None)
Quarter: 2011Q1

REPORT INFORMATION
  Report Type: 
  Country: None (occurrence: None)
  Receive Date: 20110131
  Receipt Date: 20110127
  Transmission Date: 20110831
  Serious: Yes (Hospitalization, Other)
  Sender: FDA-Public Use
  Company Number: GB-ABBOTT-10P-167-0689037-00

PATIENT
  Sex: Male
  Weight: 117 kg

DRUGS (4)
  1. OMEPRAZOLE [Concomitant]
     Indication: DYSPEPSIA
     Route: 048
     Dates: start: 20091013
  2. NITROFURANTOIN [Concomitant]
     Indication: PRODUCT USED FOR UNKNOWN INDICATION
     Route: 048
     Dates: start: 20101125
  3. HUMIRA [Suspect]
     Indication: ANKYLOSING SPONDYLITIS
     Route: 058
     Dates: start: 20090101, end: 20101103
  4. COCODAMOL [Concomitant]
     Indication: PRODUCT USED FOR UNKNOWN INDICATION
     Route: 048
     Dates: start: 20100927

REACTIONS (5)
  - HEADACHE [None]
  - HAEMORRHOIDS [None]
  - LOWER RESPIRATORY TRACT INFECTION [None]
  - CYSTITIS [None]
  - URINARY TRACT INFECTION [None]
